FAERS Safety Report 13946110 (Version 1)
Quarter: 2017Q3

REPORT INFORMATION
  Report Type: Report from Study
  Country: IT (occurrence: IT)
  Receive Date: 20170907
  Receipt Date: 20170907
  Transmission Date: 20171128
  Serious: Yes (Hospitalization, Other)
  Sender: FDA-Public Use
  Company Number: IT-ACCORD-058070

PATIENT
  Age: 80 Year
  Sex: Female

DRUGS (7)
  1. TICLOPIDINE [Concomitant]
     Active Substance: TICLOPIDINE
  2. SERTRALINE [Suspect]
     Active Substance: SERTRALINE HYDROCHLORIDE
     Indication: ANTIDEPRESSANT THERAPY
  3. LEVOTHYROXINE. [Concomitant]
     Active Substance: LEVOTHYROXINE
  4. LANSOPRAZOLE. [Concomitant]
     Active Substance: LANSOPRAZOLE
  5. AMBROXOL [Concomitant]
     Active Substance: AMBROXOL
  6. RAMIPRIL. [Concomitant]
     Active Substance: RAMIPRIL
  7. GLICLAZIDE [Concomitant]
     Active Substance: GLICLAZIDE

REACTIONS (1)
  - Liver injury [Unknown]
